FAERS Safety Report 11701388 (Version 1)
Quarter: 2015Q4

REPORT INFORMATION
  Report Type: Spontaneous
  Country: NL (occurrence: NL)
  Receive Date: 20151105
  Receipt Date: 20151105
  Transmission Date: 20160304
  Serious: Yes (Other)
  Sender: FDA-Public Use
  Company Number: NL-TEVA-580327ISR

PATIENT
  Age: 58 Year
  Sex: Female
  Weight: 75 kg

DRUGS (3)
  1. TAMOXIFEN TABLET 20MG [Suspect]
     Active Substance: TAMOXIFEN
     Indication: BREAST CANCER
     Dosage: 20 MILLIGRAM DAILY; ONCE DAILY ONE PIECE
     Route: 048
     Dates: start: 20130612, end: 20141121
  2. NITRAZEPAM TABLET 5MG [Concomitant]
     Dosage: 5 MILLIGRAM DAILY; ONCE DAILY ONE PIECE, ADDITIONAL INFO: 5MG
     Route: 048
  3. METOPROLOL TABLET MGA 100MG (SUCCINAAT) [Concomitant]
     Active Substance: METOPROLOL
     Dosage: 100 MILLIGRAM DAILY; ONCE DAILY ONE PIECE, ADDITIONAL INFO: 100MG
     Route: 048
     Dates: start: 19970701

REACTIONS (3)
  - Steatohepatitis [Unknown]
  - Hepatic function abnormal [Recovered/Resolved]
  - Lipidosis [Recovered/Resolved]

NARRATIVE: CASE EVENT DATE: 20140815
